FAERS Safety Report 10259647 (Version 1)
Quarter: 2014Q2

REPORT INFORMATION
  Report Type: Report from Study
  Country: BR (occurrence: BR)
  Receive Date: 20140625
  Receipt Date: 20140625
  Transmission Date: 20141212
  Serious: Yes (Other)
  Sender: FDA-Public Use
  Company Number: BR-ABBVIE-14P-020-1249684-00

PATIENT
  Sex: Male
  Weight: 118 kg

DRUGS (1)
  1. HUMIRA [Suspect]
     Indication: PSORIATIC ARTHROPATHY
     Dosage: ONCE A MONTH
     Route: 058

REACTIONS (6)
  - Hallucination [Not Recovered/Not Resolved]
  - Paraesthesia [Not Recovered/Not Resolved]
  - Paraesthesia [Not Recovered/Not Resolved]
  - Undersensing [Not Recovered/Not Resolved]
  - Depression [Unknown]
  - Insomnia [Unknown]
